FAERS Safety Report 4296614-2 (Version None)
Quarter: 2004Q1

REPORT INFORMATION
  Report Type: 
  Country: None (occurrence: None)
  Receive Date: 20040211
  Receipt Date: 20030221
  Transmission Date: 20041129
  Serious: Yes (Life-Threatening, Other)
  Sender: FDA-Public Use
  Company Number: M2003.3172/C2002-2698.01

PATIENT
  Age: 74 Year
  Sex: Male
  Weight: 71.6683 kg

DRUGS (6)
  1. TEMAZEPAM [Suspect]
     Indication: INSOMNIA
     Dosage: 30 MG, Q HS, ORAL
     Route: 048
     Dates: start: 20020509, end: 20020512
  2. HALOPERIDOL [Concomitant]
  3. GABAPENTIN [Concomitant]
  4. CARBIDOPA AND LEVODOPA [Concomitant]
  5. RISPERIDONE [Concomitant]
  6. LORAZEPAM [Concomitant]

REACTIONS (2)
  - LETHARGY [None]
  - SEDATION [None]
